FAERS Safety Report 23766951 (Version 2)
Quarter: 2024Q2

REPORT INFORMATION
  Report Type: Spontaneous
  Country: CO (occurrence: CO)
  Receive Date: 20240422
  Receipt Date: 20240430
  Transmission Date: 20240716
  Serious: Yes (Other)
  Sender: FDA-Public Use
  Company Number: CO-002147023-NVSC2024CO083514

PATIENT
  Age: 51 Year
  Sex: Female

DRUGS (1)
  1. TRILEPTAL [Suspect]
     Active Substance: OXCARBAZEPINE
     Indication: Product used for unknown indication
     Dosage: 600 MG, QID (4 (600 MG)) (15 YEARS AGO)
     Route: 065

REACTIONS (6)
  - Seizure [Not Recovered/Not Resolved]
  - Pain [Unknown]
  - Insomnia [Unknown]
  - Anxiety disorder [Unknown]
  - Depression [Unknown]
  - Drug ineffective [Unknown]
